FAERS Safety Report 4571543-5 (Version None)
Quarter: 2005Q1

REPORT INFORMATION
  Report Type: 
  Country: None (occurrence: None)
  Receive Date: 20050203
  Receipt Date: 20050203
  Transmission Date: 20050727
  Serious: Yes (Other)
  Sender: FDA-Public Use
  Company Number: None

PATIENT
  Age: 42 Year
  Sex: Male
  Weight: 86.637 kg

DRUGS (1)
  1. MORPHINE - MS CONTIN GENERIC [Suspect]
     Indication: OSTEOMYELITIS
     Dosage: 130 MG PO TID
     Route: 048
     Dates: start: 19990101

REACTIONS (2)
  - PHARMACEUTICAL PRODUCT COMPLAINT [None]
  - THERAPEUTIC RESPONSE DECREASED [None]
